FAERS Safety Report 17955560 (Version 1)
Quarter: 2020Q2

REPORT INFORMATION
  Report Type: Spontaneous
  Country: US (occurrence: US)
  Receive Date: 20200627
  Receipt Date: 20200627
  Transmission Date: 20200714
  Serious: Yes (Hospitalization)
  Sender: FDA-Public Use
  Company Number: None

PATIENT
  Sex: Male
  Weight: 127 kg

DRUGS (1)
  1. ABIRATERONE ACETATE. [Suspect]
     Active Substance: ABIRATERONE ACETATE

REACTIONS (5)
  - Pyrexia [None]
  - Blood lactic acid increased [None]
  - Dysuria [None]
  - Pain [None]
  - White blood cells urine positive [None]

NARRATIVE: CASE EVENT DATE: 20200626
